FAERS Safety Report 12655311 (Version 1)
Quarter: 2016Q3

REPORT INFORMATION
  Report Type: Other
  Country: DE (occurrence: DE)
  Receive Date: 20160816
  Receipt Date: 20160816
  Transmission Date: 20161109
  Serious: Yes (Other)
  Sender: FDA-Public Use
  Company Number: DE-CELLTRION HEALTHCARE HUNGARY KFT-2016DE005209

PATIENT

DRUGS (11)
  1. PREDNISOLONE. [Concomitant]
     Active Substance: PREDNISOLONE
     Dosage: UNK
     Dates: start: 20160223
  2. BUDENOFALK [Concomitant]
     Active Substance: BUDESONIDE
     Dosage: UNK
     Dates: start: 20160418
  3. REMSIMA [Suspect]
     Active Substance: INFLIXIMAB
     Dosage: UNK
     Route: 065
  4. REMSIMA [Suspect]
     Active Substance: INFLIXIMAB
     Dosage: UNK
     Route: 065
     Dates: start: 201511, end: 201511
  5. REMSIMA [Suspect]
     Active Substance: INFLIXIMAB
     Dosage: 300 MG, SINGLE
     Route: 042
     Dates: start: 20160511, end: 20160511
  6. REMSIMA [Suspect]
     Active Substance: INFLIXIMAB
     Indication: COLITIS ULCERATIVE
     Dosage: UNK
     Route: 065
     Dates: start: 201503, end: 201503
  7. REMSIMA [Suspect]
     Active Substance: INFLIXIMAB
     Dosage: UNK
     Route: 065
  8. REMSIMA [Suspect]
     Active Substance: INFLIXIMAB
     Dosage: 300 MG, SINGLE
     Route: 042
     Dates: start: 20160413, end: 20160413
  9. REMSIMA [Suspect]
     Active Substance: INFLIXIMAB
     Dosage: UNK
     Route: 065
  10. REMSIMA [Suspect]
     Active Substance: INFLIXIMAB
     Dosage: 300 MG, SINGLE
     Route: 042
     Dates: start: 20160301, end: 20160301
  11. REMSIMA [Suspect]
     Active Substance: INFLIXIMAB
     Dosage: 300 MG, SINGLE
     Route: 042
     Dates: start: 20160316, end: 20160316

REACTIONS (2)
  - Drug specific antibody present [Recovering/Resolving]
  - Drug ineffective [Recovering/Resolving]
